FAERS Safety Report 9027054 (Version 11)
Quarter: 2013Q4

REPORT INFORMATION
  Report Type: Spontaneous
  Country: CA (occurrence: CA)
  Receive Date: 20130123
  Receipt Date: 20131226
  Transmission Date: 20140711
  Serious: Yes (Death, Hospitalization)
  Sender: FDA-Public Use
  Company Number: CA-CELGENEUS-028-21880-12111396

PATIENT
  Age: 60 Year
  Sex: Male
  Weight: 120.2 kg

DRUGS (83)
  1. FLEXERIL [Concomitant]
     Indication: ADVERSE EVENT
     Route: 065
     Dates: start: 20121105, end: 20121127
  2. FLEXERIL [Concomitant]
     Route: 065
     Dates: start: 20121119, end: 20121127
  3. SULCRATE [Concomitant]
     Indication: PRODUCT USED FOR UNKNOWN INDICATION
     Route: 065
     Dates: start: 20121105, end: 20121227
  4. SULCRATE [Concomitant]
     Route: 065
     Dates: start: 20121119, end: 20121127
  5. GASTROGRAFIN [Concomitant]
     Indication: PRODUCT USED FOR UNKNOWN INDICATION
     Route: 065
     Dates: start: 20121112, end: 20121113
  6. PEG [Concomitant]
     Indication: ADVERSE EVENT
     Route: 065
     Dates: start: 20121109, end: 20121127
  7. HYDROMORPHONE CONTIN [Concomitant]
     Indication: PRODUCT USED FOR UNKNOWN INDICATION
     Route: 065
     Dates: start: 20121109, end: 20121112
  8. TYLENOL [Concomitant]
     Indication: ADVERSE EVENT
     Route: 065
     Dates: start: 20121123, end: 20121123
  9. TYLENOL [Concomitant]
     Route: 065
     Dates: start: 20121129, end: 20121214
  10. TYLENOL [Concomitant]
     Route: 065
     Dates: start: 20121230
  11. DEXTROSE [Concomitant]
     Indication: ADVERSE EVENT
     Route: 065
     Dates: start: 20121202, end: 20121203
  12. GOLYTELY [Concomitant]
     Indication: ADVERSE EVENT
     Route: 065
     Dates: start: 20121206
  13. LYRICA [Concomitant]
     Indication: ADVERSE EVENT
     Route: 065
     Dates: start: 20121121, end: 20121127
  14. PANTOPRAZOLE [Concomitant]
     Indication: ADVERSE EVENT
     Route: 065
     Dates: start: 20121119, end: 20121127
  15. VENTOLIN [Concomitant]
     Indication: ADVERSE EVENT
     Route: 065
     Dates: start: 20121118, end: 20121129
  16. VENTOLIN [Concomitant]
     Route: 065
     Dates: start: 20121118, end: 20121127
  17. TRAZODONE [Concomitant]
     Indication: ADVERSE EVENT
     Route: 065
     Dates: start: 20121228
  18. CODEINE SYRUP [Concomitant]
     Indication: ADVERSE EVENT
     Route: 065
     Dates: start: 20121230
  19. CIPROFLOXACIN [Concomitant]
     Indication: ADVERSE EVENT
     Route: 065
     Dates: start: 20130101
  20. AMOXCLAV [Concomitant]
     Indication: ADVERSE EVENT
     Route: 065
     Dates: start: 20130103
  21. BENADRYL [Concomitant]
     Indication: ADVERSE EVENT
     Route: 065
     Dates: start: 20121119, end: 20121119
  22. FLEET ENEMA [Concomitant]
     Indication: ADVERSE EVENT
     Route: 065
     Dates: start: 20121110, end: 20121110
  23. FLEET ENEMA [Concomitant]
     Route: 065
     Dates: start: 20121115, end: 20121115
  24. REVLIMID [Suspect]
     Indication: PLASMA CELL MYELOMA
     Dosage: 25 MILLIGRAM
     Route: 048
     Dates: start: 20120831, end: 20121105
  25. REVLIMID [Suspect]
     Route: 065
     Dates: start: 20121202
  26. DEXAMETHASONE [Suspect]
     Indication: PLASMA CELL MYELOMA
     Dosage: 40 MILLIGRAM
     Route: 048
     Dates: start: 20120831, end: 20121130
  27. DELATESTRYL [Concomitant]
     Indication: PRODUCT USED FOR UNKNOWN INDICATION
     Route: 065
     Dates: start: 201206
  28. CEFTRIAXONE [Concomitant]
     Indication: ADVERSE EVENT
     Route: 065
     Dates: start: 20121004, end: 20121010
  29. CEFTRIAXONE [Concomitant]
     Route: 065
     Dates: start: 20121108, end: 20121111
  30. CEFTRIAXONE [Concomitant]
     Route: 065
     Dates: start: 20121112, end: 20121114
  31. LASIX [Concomitant]
     Indication: PRODUCT USED FOR UNKNOWN INDICATION
     Route: 065
     Dates: start: 20120921, end: 20120921
  32. LASIX [Concomitant]
     Route: 065
     Dates: start: 20121019, end: 20121019
  33. LASIX [Concomitant]
     Route: 065
     Dates: start: 20121026, end: 20121026
  34. LASIX [Concomitant]
     Route: 065
     Dates: start: 20121101, end: 20121101
  35. LASIX [Concomitant]
     Route: 065
     Dates: start: 20121106, end: 20121106
  36. LASIX [Concomitant]
     Route: 065
     Dates: start: 20121107, end: 20121107
  37. LASIX [Concomitant]
     Route: 065
     Dates: start: 20121125, end: 20121125
  38. LASIX [Concomitant]
     Route: 065
     Dates: start: 20121109, end: 20121109
  39. LASIX [Concomitant]
     Route: 065
     Dates: start: 20121119, end: 20121119
  40. RED BLOOD CELLS [Concomitant]
     Indication: ADVERSE EVENT
     Dosage: 5 UNITS
     Route: 041
     Dates: start: 2012, end: 2012
  41. RED BLOOD CELLS [Concomitant]
     Dosage: 13 UNITS
     Route: 041
     Dates: start: 20121106, end: 20121106
  42. ATACAND [Concomitant]
     Indication: PRODUCT USED FOR UNKNOWN INDICATION
     Route: 065
     Dates: start: 20120214
  43. BISOPROLOL FURAMATE [Concomitant]
     Indication: PRODUCT USED FOR UNKNOWN INDICATION
     Route: 065
     Dates: start: 20100113
  44. OMEPRAZOLE [Concomitant]
     Indication: PRODUCT USED FOR UNKNOWN INDICATION
     Route: 065
     Dates: start: 20101221
  45. ASA [Concomitant]
     Indication: PRODUCT USED FOR UNKNOWN INDICATION
     Route: 065
     Dates: start: 200912
  46. LORAZEPAM [Concomitant]
     Indication: PRODUCT USED FOR UNKNOWN INDICATION
     Route: 065
     Dates: start: 20090907
  47. PROCHLORPERAZINE [Concomitant]
     Indication: PRODUCT USED FOR UNKNOWN INDICATION
     Route: 065
     Dates: start: 20120116
  48. CYCLOBENZAPRINE HCL [Concomitant]
     Indication: PRODUCT USED FOR UNKNOWN INDICATION
     Route: 065
     Dates: start: 20120727, end: 20120904
  49. FRAGMIN [Concomitant]
     Indication: ADVERSE EVENT
     Route: 065
     Dates: start: 20121004, end: 20121004
  50. FRAGMIN [Concomitant]
     Route: 065
     Dates: start: 20121201
  51. FENTANYL [Concomitant]
     Indication: PRODUCT USED FOR UNKNOWN INDICATION
     Route: 065
     Dates: start: 20120914, end: 20120914
  52. FENTANYL [Concomitant]
     Route: 065
     Dates: start: 20121105
  53. DILAUDID [Concomitant]
     Indication: ADVERSE EVENT
     Route: 065
     Dates: start: 20120914, end: 20120914
  54. DILAUDID [Concomitant]
     Route: 065
     Dates: start: 20121113, end: 20121113
  55. DILAUDID [Concomitant]
     Route: 065
     Dates: start: 20121105, end: 20121106
  56. VELCADE [Concomitant]
     Indication: PRODUCT USED FOR UNKNOWN INDICATION
     Route: 065
     Dates: start: 20120215
  57. CYCLOPHOSPHAMIDE [Concomitant]
     Indication: PRODUCT USED FOR UNKNOWN INDICATION
     Route: 065
     Dates: start: 20120215
  58. PREDNISONE [Concomitant]
     Indication: PRODUCT USED FOR UNKNOWN INDICATION
     Route: 065
     Dates: start: 20120215
  59. PIPTAZ [Concomitant]
     Indication: ADVERSE EVENT
     Route: 065
     Dates: start: 20121105, end: 20121108
  60. PIPTAZ [Concomitant]
     Route: 065
     Dates: start: 20121127, end: 20121214
  61. MORPHINE [Concomitant]
     Indication: PRODUCT USED FOR UNKNOWN INDICATION
     Route: 065
     Dates: start: 20121104
  62. MORPHINE [Concomitant]
     Route: 065
     Dates: start: 20121202, end: 20121202
  63. FLOVENT [Concomitant]
     Indication: ADVERSE EVENT
     Route: 065
     Dates: start: 20121105
  64. OXYGEN [Concomitant]
     Indication: ADVERSE EVENT
     Route: 065
     Dates: start: 20121105
  65. DULCOLAX [Concomitant]
     Indication: ADVERSE EVENT
     Route: 065
     Dates: start: 20121107, end: 20121107
  66. DULCOLAX [Concomitant]
     Route: 065
     Dates: start: 20121108, end: 20121108
  67. DULCOLAX [Concomitant]
     Route: 065
     Dates: start: 20121117, end: 20121117
  68. DULCOLAX [Concomitant]
     Route: 065
     Dates: start: 20121121, end: 20121121
  69. NORMAL SALINE [Concomitant]
     Indication: ADVERSE EVENT
     Route: 065
     Dates: start: 20121120
  70. NORMAL SALINE [Concomitant]
     Route: 065
     Dates: start: 20121109, end: 20121109
  71. NORMAL SALINE [Concomitant]
     Route: 065
     Dates: start: 20121201, end: 20121201
  72. NORMAL SALINE [Concomitant]
     Route: 065
     Dates: start: 20121203, end: 20121203
  73. PEGLYTE [Concomitant]
     Indication: ADVERSE EVENT
     Route: 065
     Dates: start: 20121121, end: 20121121
  74. NYSTATIN [Concomitant]
     Indication: ADVERSE EVENT
     Route: 065
     Dates: start: 20121126, end: 20121205
  75. AMLODIPINE [Concomitant]
     Indication: ADVERSE EVENT
     Route: 065
     Dates: start: 20121129
  76. ZOMETA [Concomitant]
     Indication: ADVERSE EVENT
     Route: 065
     Dates: start: 20121128, end: 20121128
  77. K-DUR [Concomitant]
     Indication: ADVERSE EVENT
     Route: 065
     Dates: start: 20121202
  78. K-DUR [Concomitant]
     Route: 065
     Dates: start: 20121128, end: 20121128
  79. VANCOMYCIN [Concomitant]
     Indication: ADVERSE EVENT
     Route: 065
     Dates: start: 20121203, end: 20121204
  80. PHOSPHATE EFFERVESCENT [Concomitant]
     Indication: ADVERSE EVENT
     Route: 065
     Dates: start: 20121203, end: 20121217
  81. KCL [Concomitant]
     Indication: ADVERSE EVENT
     Route: 065
     Dates: start: 20121130, end: 20121130
  82. KCL [Concomitant]
     Route: 065
     Dates: start: 20121202
  83. MAGNESIUM [Concomitant]
     Indication: ADVERSE EVENT
     Route: 065
     Dates: start: 20121202, end: 20121202

REACTIONS (3)
  - Adenocarcinoma of colon [Fatal]
  - Streptococcal bacteraemia [Recovered/Resolved]
  - Spinal cord compression [Not Recovered/Not Resolved]
